FAERS Safety Report 6239783-7 (Version None)
Quarter: 2009Q2

REPORT INFORMATION
  Report Type: 
  Country: None (occurrence: None)
  Receive Date: 20090623
  Receipt Date: 20090609
  Transmission Date: 20091009
  Serious: Yes (Other)
  Sender: FDA-Public Use
  Company Number: DE-RANBAXY-2009RR-24834

PATIENT
  Age: 52 Year
  Sex: Male

DRUGS (2)
  1. AMOXICILLIN [Suspect]
     Indication: PERIODONTAL DISEASE
     Dosage: 1 DF, TID
     Route: 048
  2. METRONIDAZOLE [Concomitant]
     Indication: PERIODONTAL DISEASE
     Dosage: 400 MG, TID
     Route: 048

REACTIONS (1)
  - ERYTHEMA [None]
